FAERS Safety Report 7655446-5 (Version None)
Quarter: 2011Q3

REPORT INFORMATION
  Report Type: 
  Country: None (occurrence: None)
  Receive Date: 20110729
  Receipt Date: 20110718
  Transmission Date: 20111222
  Serious: Yes (Death, Hospitalization)
  Sender: FDA-Public Use
  Company Number: PYR-11-23

PATIENT
  Age: 32 Year
  Sex: Male

DRUGS (4)
  1. RIFAMPICIN [Concomitant]
  2. ETHAMBUTOL HYDROCHLORIDE [Concomitant]
  3. PYRAZINAMIDE [Suspect]
     Indication: TUBERCULOSIS
  4. ISONIAZID [Concomitant]

REACTIONS (3)
  - ANAEMIA [None]
  - SKIN LESION [None]
  - HYPONATRAEMIA [None]
